FAERS Safety Report 13448893 (Version 1)
Quarter: 2017Q2

REPORT INFORMATION
  Report Type: Spontaneous
  Country: BR (occurrence: BR)
  Receive Date: 20170417
  Receipt Date: 20170417
  Transmission Date: 20170830
  Serious: Yes (Other)
  Sender: FDA-Public Use
  Company Number: BR-TEVA-759335ROM

PATIENT
  Age: 41 Year
  Sex: Female
  Weight: 62 kg

DRUGS (2)
  1. TORSILAX [Concomitant]
     Active Substance: ACETAMINOPHEN\CAFFEINE\CARISOPRODOL\DICLOFENAC
     Indication: PAIN
  2. TEVAMETHO [Suspect]
     Active Substance: METHOTREXATE
     Indication: RHEUMATOID ARTHRITIS
     Dosage: .1429 DOSAGE FORMS DAILY;
     Route: 058
     Dates: start: 2013

REACTIONS (7)
  - Vomiting [Recovered/Resolved]
  - Blister [Recovered/Resolved]
  - Application site pruritus [Recovered/Resolved]
  - Choking sensation [Recovered/Resolved]
  - Application site rash [Recovered/Resolved]
  - Diarrhoea [Recovered/Resolved]
  - Throat tightness [Recovered/Resolved]

NARRATIVE: CASE EVENT DATE: 20170323
